FAERS Safety Report 4364404-8 (Version None)
Quarter: 2004Q2

REPORT INFORMATION
  Report Type: 
  Country: None (occurrence: None)
  Receive Date: 20040521
  Receipt Date: 20040517
  Transmission Date: 20050107
  Serious: Yes (Hospitalization)
  Sender: FDA-Public Use
  Company Number: 04-05-0710

PATIENT
  Age: 19 Year
  Sex: Female

DRUGS (1)
  1. CLOZAPINE [Suspect]
     Indication: SCHIZOAFFECTIVE DISORDER
     Dosage: 300-350MG QD ORAL
     Route: 048
     Dates: start: 20031201

REACTIONS (1)
  - FOREIGN BODY TRAUMA [None]
